FAERS Safety Report 22771475 (Version 2)
Quarter: 2023Q4

REPORT INFORMATION
  Report Type: Report from Study
  Country: CN (occurrence: CN)
  Receive Date: 20230801
  Receipt Date: 20231215
  Transmission Date: 20240110
  Serious: Yes (Other)
  Sender: FDA-Public Use
  Company Number: CN-TAKEDA-2022TUS056916

PATIENT
  Age: 46 Year
  Sex: Male

DRUGS (11)
  1. IXAZOMIB [Suspect]
     Active Substance: IXAZOMIB
     Indication: Plasma cell myeloma
     Dosage: 4 MILLIGRAM, Q2WEEKS
     Route: 048
     Dates: start: 20220222
  2. COBAMAMIDE [Concomitant]
     Active Substance: COBAMAMIDE
     Indication: Thrombocytopenia
     Dosage: 0.25 MILLIGRAM, QD
     Route: 048
     Dates: start: 2021
  3. ACYCLOVIR [Concomitant]
     Active Substance: ACYCLOVIR
     Indication: Antiviral treatment
     Dosage: 0.2 GRAM, TID
     Route: 048
     Dates: start: 20210118
  4. ONDANSETRON HYDROCHLORIDE [Concomitant]
     Active Substance: ONDANSETRON HYDROCHLORIDE
     Indication: Prophylaxis of nausea and vomiting
     Dosage: 4 MILLIGRAM
     Route: 048
     Dates: start: 20220222
  5. ONDANSETRON HYDROCHLORIDE [Concomitant]
     Active Substance: ONDANSETRON HYDROCHLORIDE
     Indication: Gastrointestinal disorder prophylaxis
  6. LYRICA [Concomitant]
     Active Substance: PREGABALIN
     Indication: Nerve injury
     Dosage: 75 MILLIGRAM, QD
     Route: 048
     Dates: start: 20220322
  7. METHYLCOBALAMIN [Concomitant]
     Active Substance: METHYLCOBALAMIN
     Indication: Nerve injury
     Dosage: 0.5 MILLIGRAM, TID
     Route: 048
     Dates: start: 20220322
  8. CLODRONATE DISODIUM [Concomitant]
     Active Substance: CLODRONATE DISODIUM
     Indication: Prophylaxis
     Dosage: 0.2 GRAM, BID
     Route: 048
     Dates: start: 20220614
  9. CALCITRIOL [Concomitant]
     Active Substance: CALCITRIOL
     Indication: Osteoporosis prophylaxis
     Dosage: 0.25 MICROGRAM, QD
     Route: 048
     Dates: start: 20220614
  10. CALCIUM CARBONATE\CHOLECALCIFEROL [Concomitant]
     Active Substance: CALCIUM CARBONATE\CHOLECALCIFEROL
     Indication: Mineral supplementation
     Dosage: 600 MILLIGRAM, QD
     Route: 048
     Dates: start: 20220809
  11. FENOFIBRATE [Concomitant]
     Active Substance: FENOFIBRATE
     Indication: Lipids decreased
     Dosage: 200 MILLIGRAM, QD
     Route: 048
     Dates: start: 20220809

REACTIONS (3)
  - COVID-19 pneumonia [Recovered/Resolved]
  - Lymphocyte count decreased [Recovered/Resolved]
  - Off label use [Unknown]

NARRATIVE: CASE EVENT DATE: 20220222
